FAERS Safety Report 7051309-7 (Version None)
Quarter: 2010Q4

REPORT INFORMATION
  Report Type: 
  Country: None (occurrence: None)
  Receive Date: 20101019
  Receipt Date: 20101012
  Transmission Date: 20110411
  Serious: Yes (Hospitalization)
  Sender: FDA-Public Use
  Company Number: US-GENZYME-RENA-1000886

PATIENT
  Age: 92 Year
  Sex: Female

DRUGS (1)
  1. RENVELA [Suspect]
     Indication: HYPERPHOSPHATAEMIA
     Dosage: 0.8 G, TID
     Route: 048
     Dates: start: 20090101

REACTIONS (2)
  - FLUID RETENTION [None]
  - ORAL ADMINISTRATION COMPLICATION [None]
